FAERS Safety Report 7625895-X (Version None)
Quarter: 2011Q3

REPORT INFORMATION
  Report Type: 
  Country: None (occurrence: None)
  Receive Date: 20110721
  Receipt Date: 20110711
  Transmission Date: 20111222
  Serious: Yes (Hospitalization, Other)
  Sender: FDA-Public Use
  Company Number: CH-JNJFOC-20110411184

PATIENT
  Age: 70 Year
  Sex: Male
  Weight: 65 kg

DRUGS (11)
  1. CAPTOPRIL [Suspect]
     Indication: HYPERTENSION
     Route: 048
     Dates: end: 20110530
  2. PALIPERIDONE [Suspect]
     Indication: SCHIZOPHRENIA
     Route: 030
     Dates: start: 20110509
  3. PALIPERIDONE [Suspect]
     Route: 030
     Dates: start: 20110516, end: 20110601
  4. ABILIFY [Suspect]
     Route: 048
     Dates: start: 20110617, end: 20110624
  5. FLUANXOL NOS [Concomitant]
     Indication: SCHIZOPHRENIA
     Route: 048
     Dates: start: 20110622
  6. LORAZEPAM [Concomitant]
     Dosage: MAXIMUM 2 MG PER DAY AS NEEDED
     Route: 048
  7. ABILIFY [Suspect]
     Indication: SCHIZOPHRENIA
     Route: 048
     Dates: start: 20110414
  8. CARVEDILOL [Concomitant]
     Indication: HYPERTENSION
     Route: 048
     Dates: start: 20110207
  9. RISPERDAL CONSTA [Suspect]
     Indication: SCHIZOPHRENIA
     Route: 030
     Dates: start: 20110201, end: 20110331
  10. ABILIFY [Suspect]
     Route: 048
     Dates: end: 20110426
  11. ABILIFY [Suspect]
     Route: 048
     Dates: start: 20110427, end: 20110616

REACTIONS (2)
  - HYPONATRAEMIA [None]
  - INAPPROPRIATE ANTIDIURETIC HORMONE SECRETION [None]
